FAERS Safety Report 8901037 (Version 2)
Quarter: 2013Q1

REPORT INFORMATION
  Report Type: Spontaneous
  Country: US (occurrence: US)
  Receive Date: 20121109
  Receipt Date: 20130114
  Transmission Date: 20140127
  Serious: Yes (Hospitalization)
  Sender: FDA-Public Use
  Company Number: US-BRISTOL-MYERS SQUIBB COMPANY-16981854

PATIENT
  Age: 67 Year
  Sex: Female
  Weight: 83.9 kg

DRUGS (5)
  1. ORENCIA [Suspect]
     Indication: RHEUMATOID ARTHRITIS
     Dosage: LAST INF 17SEP12?NO OF INF 3.?17AUG12:2D73511:MAR15?17SEP12:2E71610:APR15?18OCT12:2E71611:APR15
     Route: 042
     Dates: start: 20120711
  2. METHOTREXATE [Concomitant]
  3. PREDNISONE [Concomitant]
  4. MACRODANTIN [Concomitant]
  5. MVI [Concomitant]

REACTIONS (2)
  - Pulmonary embolism [Recovering/Resolving]
  - Drug ineffective [Unknown]
